FAERS Safety Report 4669551-9 (Version None)
Quarter: 2005Q2

REPORT INFORMATION
  Report Type: 
  Country: None (occurrence: None)
  Receive Date: 20050523
  Receipt Date: 20050111
  Transmission Date: 20051028
  Serious: Yes (Other)
  Sender: FDA-Public Use
  Company Number: PHBS2005BE00833

PATIENT
  Age: 56 Year
  Sex: Female

DRUGS (13)
  1. TAMOXIFEN [Concomitant]
     Dates: start: 20001001
  2. RADIOTHERAPY [Concomitant]
     Dates: start: 20020101
  3. DEXAMETHASONE [Concomitant]
     Dates: start: 20031008, end: 20040129
  4. CISPLATIN [Concomitant]
     Dates: start: 20040303, end: 20040419
  5. DOCETAXEL [Concomitant]
     Dates: start: 20040819, end: 20040916
  6. SOLU-MEDROL [Concomitant]
     Dates: start: 20040819, end: 20040916
  7. SOLU-MEDROL [Concomitant]
     Dates: start: 20040916
  8. PACLITAXEL [Concomitant]
  9. AREDIA [Suspect]
     Indication: METASTASES TO BONE
     Route: 065
     Dates: start: 20001026, end: 20020709
  10. ZOMETA [Suspect]
     Indication: METASTASES TO BONE
     Dosage: UNK, ONCE/SINGLE
     Route: 065
     Dates: start: 20021001, end: 20021001
  11. ZOMETA [Suspect]
     Route: 065
     Dates: start: 20030415, end: 20030930
  12. ZOMETA [Suspect]
     Route: 065
     Dates: start: 20040121, end: 20050323
  13. FEMARA [Concomitant]
     Indication: METASTASES TO BONE
     Dates: start: 20011101

REACTIONS (3)
  - OSTEONECROSIS [None]
  - TOOTH LOSS [None]
  - TOOTHACHE [None]
